FAERS Safety Report 6067835-3 (Version None)
Quarter: 2009Q1

REPORT INFORMATION
  Report Type: 
  Country: None (occurrence: None)
  Receive Date: 20090202
  Receipt Date: 20090126
  Transmission Date: 20090719
  Serious: Yes (Hospitalization)
  Sender: FDA-Public Use
  Company Number: CERZ-1000496

PATIENT
  Age: 30 Year
  Sex: Female

DRUGS (2)
  1. CEREZYME [Suspect]
     Indication: GAUCHER'S DISEASE
     Dosage: 2400 U, Q2W, INTRAVENOUS, 2400 U, Q2W, INTRAVENOUS
     Route: 042
     Dates: start: 19970214, end: 20080210
  2. CEREZYME [Suspect]
     Indication: GAUCHER'S DISEASE
     Dosage: 2400 U, Q2W, INTRAVENOUS, 2400 U, Q2W, INTRAVENOUS
     Route: 042
     Dates: start: 20080501

REACTIONS (6)
  - CAESAREAN SECTION [None]
  - DRUG EXPOSURE DURING PREGNANCY [None]
  - FAILED INDUCTION OF LABOUR [None]
  - PRE-ECLAMPSIA [None]
  - PREGNANCY [None]
  - PROTEINURIA [None]
